FAERS Safety Report 15300015 (Version 4)
Quarter: 2019Q3

REPORT INFORMATION
  Report Type: Spontaneous
  Country: US (occurrence: US)
  Receive Date: 20180821
  Receipt Date: 20190710
  Transmission Date: 20191004
  Serious: No
  Sender: FDA-Public Use
  Company Number: US-PFIZER INC-2018331081

PATIENT
  Age: 56 Year
  Sex: Female

DRUGS (4)
  1. LYRICA [Suspect]
     Active Substance: PREGABALIN
     Indication: POLYNEUROPATHY
     Dosage: 150 MG, 3X/DAY
  2. LYRICA [Suspect]
     Active Substance: PREGABALIN
     Indication: IMMUNOSUPPRESSION
  3. LYRICA [Suspect]
     Active Substance: PREGABALIN
     Indication: PULMONARY SARCOIDOSIS
     Dosage: 150 MG, 3X/DAY
     Route: 048
     Dates: start: 20190617
  4. LYRICA [Suspect]
     Active Substance: PREGABALIN
     Indication: CUTANEOUS SARCOIDOSIS

REACTIONS (1)
  - Product dose omission [Unknown]
